FAERS Safety Report 24987431 (Version 1)
Quarter: 2025Q1

REPORT INFORMATION
  Report Type: Spontaneous
  Country: US (occurrence: US)
  Receive Date: 20250219
  Receipt Date: 20250219
  Transmission Date: 20250408
  Serious: No
  Sender: CARDINAL HEALTH
  Company Number: US-Cardinal Health 414-NPHS-AE-24-14

PATIENT
  Age: 20 Year
  Sex: Male

DRUGS (1)
  1. TECHNETIUM TC-99M MEDRONATE KIT [Suspect]
     Active Substance: TECHNETIUM TC-99M MEDRONATE
     Indication: Bone scan
     Route: 065
     Dates: start: 20240321, end: 20240321

REACTIONS (3)
  - Drug ineffective [Recovered/Resolved]
  - Radioisotope uptake increased [Recovered/Resolved]
  - Off label use [Recovered/Resolved]

NARRATIVE: CASE EVENT DATE: 20240321
